FAERS Safety Report 9372722 (Version 1)
Quarter: 2013Q2

REPORT INFORMATION
  Report Type: Report from Study
  Country: US (occurrence: US)
  Receive Date: 20130627
  Receipt Date: 20130627
  Transmission Date: 20140414
  Serious: Yes (Death)
  Sender: FDA-Public Use
  Company Number: US-MYLANLABS-2013S1007015

PATIENT
  Age: 51 Year
  Sex: Male

DRUGS (3)
  1. CLOZAPINE TABLETS [Suspect]
     Indication: SCHIZOPHRENIA, PARANOID TYPE
     Route: 048
     Dates: start: 200511
  2. PAROXETINE [Concomitant]
     Route: 048
     Dates: start: 2008
  3. THIOTHIXENE HYDROCHLORIDE [Concomitant]
     Dates: start: 2010

REACTIONS (1)
  - Cardiac arrest [Fatal]
